FAERS Safety Report 21781577 (Version 1)
Quarter: 2022Q4

REPORT INFORMATION
  Report Type: Spontaneous
  Country: US (occurrence: None)
  Receive Date: 20221222
  Receipt Date: 20221222
  Transmission Date: 20230112
  Serious: Yes (Hospitalization)
  Sender: FDA-Public Use
  Company Number: None

PATIENT
  Sex: Female

DRUGS (2)
  1. REMODULIN [Suspect]
     Active Substance: TREPROSTINIL
     Indication: Pulmonary arterial hypertension
     Dosage: DOSE: 93 MG/KG/MIN?FREQUENCY: CONTINUOUS
     Route: 042
     Dates: start: 202004
  2. DEVICE [Suspect]
     Active Substance: DEVICE
     Indication: Pulmonary arterial hypertension
     Dosage: OTHER QUANTITY : 83 NG/KG/MIN;?OTHER FREQUENCY : CONTINUOUS ;?
     Route: 042
     Dates: start: 202104

REACTIONS (3)
  - Device malfunction [None]
  - Device defective [None]
  - Injury [None]
